FAERS Safety Report 5125173-7 (Version None)
Quarter: 2006Q4

REPORT INFORMATION
  Report Type: 
  Country: None (occurrence: None)
  Receive Date: 20061010
  Receipt Date: 20061010
  Transmission Date: 20070319
  Serious: Yes (Life-Threatening)
  Sender: FDA-Public Use
  Company Number: None

PATIENT
  Age: 73 Year
  Sex: Male

DRUGS (2)
  1. MORPHINE [Suspect]
     Indication: PAIN
     Dosage: 15 MG Q 12 H
     Dates: start: 20050701
  2. PLAVIX [Concomitant]

REACTIONS (2)
  - ABDOMINAL PAIN [None]
  - ILEUS [None]
